FAERS Safety Report 9270559 (Version 1)
Quarter: 2013Q2

REPORT INFORMATION
  Report Type: Spontaneous
  Country: GB (occurrence: GB)
  Receive Date: 20130506
  Receipt Date: 20130506
  Transmission Date: 20140414
  Serious: Yes (Hospitalization)
  Sender: FDA-Public Use
  Company Number: GB-ROCHE-1221007

PATIENT
  Age: 22 Year
  Sex: Female
  Weight: 47.3 kg

DRUGS (6)
  1. ROACTEMRA [Suspect]
     Indication: JUVENILE IDIOPATHIC ARTHRITIS
     Route: 042
     Dates: start: 20100905, end: 20130207
  2. CO-CODAMOL [Concomitant]
  3. DICLOFENAC [Concomitant]
  4. METHOTREXATE [Concomitant]
  5. OMEPRAZOLE [Concomitant]
  6. TRAMADOL [Concomitant]

REACTIONS (2)
  - Gastric haemorrhage [Unknown]
  - Haematemesis [Recovering/Resolving]
